FAERS Safety Report 8101255 (Version 3)
Quarter: 2013Q4

REPORT INFORMATION
  Report Type: Spontaneous
  Country: US (occurrence: US)
  Receive Date: 20110823
  Receipt Date: 20131202
  Transmission Date: 20140711
  Serious: Yes (Hospitalization)
  Sender: FDA-Public Use
  Company Number: US-BAYER-2011-075597

PATIENT
  Age: 18 Year
  Sex: Female
  Weight: 102 kg

DRUGS (2)
  1. YAZ [Suspect]
     Indication: DYSMENORRHOEA
     Dosage: UNK
     Dates: start: 2008, end: 2010
  2. XANAX [Concomitant]
     Dosage: UNK
     Dates: start: 20100101

REACTIONS (3)
  - Gallbladder injury [None]
  - Injury [Unknown]
  - Cholecystitis acute [None]
